FAERS Safety Report 5108527-4 (Version None)
Quarter: 2006Q3

REPORT INFORMATION
  Report Type: 
  Country: None (occurrence: None)
  Receive Date: 20060914
  Receipt Date: 20060830
  Transmission Date: 20061208
  Serious: No
  Sender: FDA-Public Use
  Company Number: 36236

PATIENT
  Age: 15 Year
  Sex: Female

DRUGS (1)
  1. CIPROFLOXACIN [Suspect]
     Indication: HORDEOLUM
     Dosage: 1 TAB ONCE
     Route: 048

REACTIONS (3)
  - ANAPHYLACTOID REACTION [None]
  - ANGIONEUROTIC OEDEMA [None]
  - LOSS OF CONSCIOUSNESS [None]
